FAERS Safety Report 20702407 (Version 5)
Quarter: 2023Q2

REPORT INFORMATION
  Report Type: Spontaneous
  Country: US (occurrence: US)
  Receive Date: 20220412
  Receipt Date: 20230623
  Transmission Date: 20230722
  Serious: No
  Sender: FDA-Public Use
  Company Number: US-PFIZER INC-202101227487

PATIENT
  Age: 61 Year
  Sex: Female

DRUGS (1)
  1. IBRANCE [Suspect]
     Active Substance: PALBOCICLIB
     Indication: Breast cancer metastatic
     Dosage: 100 MG DAILY FOR 21 DAYS THEN 7 DAYS OFF
     Route: 048

REACTIONS (6)
  - Anxiety [Unknown]
  - Throat irritation [Unknown]
  - Rhinorrhoea [Unknown]
  - Brain fog [Unknown]
  - COVID-19 [Recovering/Resolving]
  - Blood sodium decreased [Unknown]

NARRATIVE: CASE EVENT DATE: 20220401
